FAERS Safety Report 7804194-7 (Version None)
Quarter: 2011Q4

REPORT INFORMATION
  Report Type: 
  Country: None (occurrence: None)
  Receive Date: 20111010
  Receipt Date: 20110929
  Transmission Date: 20120403
  Serious: No
  Sender: FDA-Public Use
  Company Number: US-JNJFOC-20111001021

PATIENT
  Sex: Male

DRUGS (3)
  1. INVEGA SUSTENNA [Suspect]
     Indication: PRODUCT USED FOR UNKNOWN INDICATION
     Route: 030
     Dates: start: 20110901
  2. INVEGA SUSTENNA [Suspect]
     Route: 030
     Dates: start: 20110901
  3. ZYPREXA [Concomitant]
     Route: 065

REACTIONS (1)
  - ERECTILE DYSFUNCTION [None]
